FAERS Safety Report 4282367-0 (Version None)
Quarter: 2004Q1

REPORT INFORMATION
  Report Type: 
  Country: None (occurrence: None)
  Receive Date: 20040114
  Receipt Date: 20030302
  Transmission Date: 20041129
  Serious: Yes (Disabling, Other)
  Sender: FDA-Public Use
  Company Number: PHEH2002US09306

PATIENT
  Age: 38 Year
  Sex: Female
  Weight: 68.5 kg

DRUGS (5)
  1. SANDOSTATIN LAR [Suspect]
     Indication: ACROMEGALY
     Dosage: 30 MG, INTRAMUSCULAR
     Route: 030
     Dates: start: 20020901, end: 20021101
  2. SANDOSTATIN [Suspect]
     Indication: ACROMEGALY
     Dosage: SEE IMAGE
     Dates: start: 20020501, end: 20020901
  3. SANDOSTATIN [Suspect]
     Indication: ACROMEGALY
     Dosage: SEE IMAGE
     Dates: start: 20021101
  4. OXYCODONE HCL [Concomitant]
  5. DOSTINEX [Concomitant]

REACTIONS (7)
  - ASTHENIA [None]
  - DRUG INEFFECTIVE [None]
  - HEADACHE [None]
  - HYPERHIDROSIS [None]
  - PITUITARY TUMOUR BENIGN [None]
  - PITUITARY TUMOUR REMOVAL [None]
  - VISUAL FIELD TESTS ABNORMAL [None]
